FAERS Safety Report 12226965 (Version 1)
Quarter: 2016Q1

REPORT INFORMATION
  Report Type: Spontaneous
  Country: US (occurrence: US)
  Receive Date: 20160331
  Receipt Date: 20160331
  Transmission Date: 20160526
  Serious: No
  Sender: FDA-Public Use
  Company Number: US-BAYER-2016-055871

PATIENT
  Age: 61 Year
  Sex: Male
  Weight: 78.91 kg

DRUGS (1)
  1. CLARITIN REDITABS [Suspect]
     Active Substance: LORATADINE
     Indication: MULTIPLE ALLERGIES
     Dosage: 1 DF, QD
     Route: 048
     Dates: start: 20160314

REACTIONS (2)
  - Product use issue [None]
  - Drug ineffective [None]
